FAERS Safety Report 16304418 (Version 2)
Quarter: 2019Q2

REPORT INFORMATION
  Report Type: Report from Study
  Country: NL (occurrence: NL)
  Receive Date: 20190513
  Receipt Date: 20190523
  Transmission Date: 20190711
  Serious: Yes (Hospitalization)
  Sender: FDA-Public Use
  Company Number: NL-SA-2018SA048495

PATIENT
  Age: 67 Year
  Sex: Male
  Weight: 59 kg

DRUGS (18)
  1. ZOLADEX [Concomitant]
     Active Substance: GOSERELIN ACETATE
     Dosage: UNK UNK, UNK
     Dates: start: 20140408
  2. ZOLADEX [Concomitant]
     Active Substance: GOSERELIN ACETATE
     Dosage: 10.8 MG, Q3M (1 INJECTION EVERY 3 MONTHS)
     Route: 058
  3. CEFUROXIME. [Concomitant]
     Active Substance: CEFUROXIME
     Indication: HYDRONEPHROSIS
     Dosage: UNK UNK,UNK
     Route: 065
     Dates: start: 20180216, end: 20180222
  4. FENTANYL. [Concomitant]
     Active Substance: FENTANYL
     Indication: BONE PAIN
     Dosage: 75 UG,QD
     Route: 062
     Dates: start: 20170612
  5. PARACETAMOL [Concomitant]
     Active Substance: ACETAMINOPHEN
     Indication: PAIN
     Dosage: 3000 MG,UNK
     Route: 065
     Dates: start: 20170612
  6. DIAZEPAM. [Concomitant]
     Active Substance: DIAZEPAM
     Indication: INSOMNIA
     Dosage: UNK UNK,UNK
     Route: 048
     Dates: start: 20171208
  7. PREDNISOLONE. [Suspect]
     Active Substance: PREDNISOLONE
     Indication: PROSTATE CANCER METASTATIC
     Dosage: 5 MG,QD
     Route: 048
     Dates: start: 20171130
  8. ZOLADEX [Concomitant]
     Active Substance: GOSERELIN ACETATE
     Dosage: UNK
     Route: 065
     Dates: start: 201608
  9. XGEVA [Concomitant]
     Active Substance: DENOSUMAB
     Dosage: 70MG/ML INJECTION FLUID VIAL OF 120 MG = 1,7 ML,
     Route: 065
     Dates: start: 20180209
  10. DEXAMETHASONE. [Concomitant]
     Active Substance: DEXAMETHASONE
     Dosage: 2 DF, QD
     Route: 048
  11. CABAZITAXEL [Suspect]
     Active Substance: CABAZITAXEL
     Dosage: 46 MG,QCY
     Route: 042
     Dates: start: 20171110, end: 20171110
  12. PREDNISONE. [Concomitant]
     Active Substance: PREDNISONE
     Dosage: UNK
     Route: 065
     Dates: start: 20170901
  13. CABAZITAXEL [Suspect]
     Active Substance: CABAZITAXEL
     Indication: PROSTATE CANCER METASTATIC
     Dosage: 34 MG,QCY
     Route: 042
     Dates: start: 20180129, end: 20180129
  14. OXYNORM [Concomitant]
     Active Substance: OXYCODONE HYDROCHLORIDE
     Indication: BONE PAIN
     Dosage: 10 MG,UNK
     Route: 048
     Dates: start: 20170612
  15. DUROGESIC [Concomitant]
     Active Substance: FENTANYL
     Indication: PAIN
     Dosage: 75 MCG PER HOUR TRANSDERMAL PATCH, EVERY 72H
     Route: 065
  16. NEULASTA [Concomitant]
     Active Substance: PEGFILGRASTIM
     Dosage: 6 MG, Q3W
     Route: 058
     Dates: start: 20180130
  17. PREDNISONE. [Concomitant]
     Active Substance: PREDNISONE
     Dosage: UNK UNK, UNK
     Route: 065
     Dates: start: 20161212
  18. XGEVA [Concomitant]
     Active Substance: DENOSUMAB
     Dosage: UNK UNK, UNK
     Route: 065
     Dates: start: 201702

REACTIONS (2)
  - Flank pain [Recovered/Resolved]
  - Hydronephrosis [Not Recovered/Not Resolved]

NARRATIVE: CASE EVENT DATE: 20180216
